FAERS Safety Report 4915699-0 (Version None)
Quarter: 2006Q1

REPORT INFORMATION
  Report Type: 
  Country: None (occurrence: None)
  Receive Date: 20060213
  Receipt Date: 20060202
  Transmission Date: 20060701
  Serious: Yes (Congenital Anomaly)
  Sender: FDA-Public Use
  Company Number: 2006009981

PATIENT
  Sex: 0

DRUGS (3)
  1. SERTRALINE [Suspect]
     Indication: ILL-DEFINED DISORDER
  2. TRAZODONE HCL [Suspect]
     Indication: ILL-DEFINED DISORDER
  3. CITALOPRAM (CITALOPRAM) [Suspect]
     Indication: ILL-DEFINED DISORDER

REACTIONS (3)
  - CONGENITAL ANOMALY [None]
  - CONGENITAL CARDIOVASCULAR ANOMALY [None]
  - DRUG EXPOSURE DURING PREGNANCY [None]
